FAERS Safety Report 8867589 (Version 1)
Quarter: 2012Q4

REPORT INFORMATION
  Report Type: 
  Country: US (occurrence: US)
  Receive Date: 20121025
  Receipt Date: 20121025
  Transmission Date: 20130627
  Serious: No
  Sender: FDA-Public Use
  Company Number: US-AMGEN-USASP2012017540

PATIENT
  Age: 67 Year
  Sex: Female
  Weight: 54.88 kg

DRUGS (2)
  1. ENBREL [Suspect]
     Indication: PRODUCT USED FOR UNKNOWN INDICATION
     Dosage: 50 mg, qwk
  2. SIMVASTATIN [Concomitant]
     Dosage: 20 mg, UNK

REACTIONS (1)
  - Injection site swelling [Recovered/Resolved]
